FAERS Safety Report 21127777 (Version 1)
Quarter: 2022Q3

REPORT INFORMATION
  Report Type: Spontaneous
  Country: US (occurrence: US)
  Receive Date: 20220725
  Receipt Date: 20220725
  Transmission Date: 20221027
  Serious: No
  Sender: FDA-Public Use
  Company Number: US-ABBVIE-22K-163-4225434-00

PATIENT
  Age: 63 Year
  Sex: Female
  Weight: 53.118 kg

DRUGS (4)
  1. SYNTHROID [Suspect]
     Active Substance: LEVOTHYROXINE SODIUM
     Indication: Hypothyroidism
     Route: 048
     Dates: start: 2007
  2. Covid-19 vaccine (NON-ABBVIE) [Concomitant]
     Indication: COVID-19 immunisation
     Dosage: PFIZER
     Route: 030
     Dates: start: 20210127, end: 20210127
  3. Covid-19 vaccine (NON-ABBVIE) [Concomitant]
     Dosage: PFIZER
     Route: 030
     Dates: start: 20210217, end: 20210217
  4. Covid-19 vaccine (NON-ABBVIE) [Concomitant]
     Dosage: PFIZER
     Route: 030
     Dates: start: 20211116, end: 20211116

REACTIONS (3)
  - Headache [Not Recovered/Not Resolved]
  - Balance disorder [Unknown]
  - Dizziness [Unknown]

NARRATIVE: CASE EVENT DATE: 20211101
